FAERS Safety Report 22040045 (Version 1)
Quarter: 2023Q1

REPORT INFORMATION
  Report Type: Spontaneous
  Country: US (occurrence: None)
  Receive Date: 20230224
  Receipt Date: 20230224
  Transmission Date: 20230417
  Serious: Yes (Other)
  Sender: FDA-Public Use
  Company Number: None

PATIENT
  Age: 74 Year
  Sex: Female
  Weight: 102 kg

DRUGS (3)
  1. FOSAPREPITANT [Suspect]
     Active Substance: FOSAPREPITANT
     Dosage: INTRAVENOUS
     Route: 042
     Dates: start: 20230216, end: 20230216
  2. DEXAMETHASONE [Concomitant]
     Active Substance: DEXAMETHASONE
     Dates: start: 20230216, end: 20230216
  3. ONDANSETRON [Concomitant]
     Active Substance: ONDANSETRON
     Dates: start: 20230216, end: 20230216

REACTIONS (5)
  - Infusion related reaction [None]
  - Feeling hot [None]
  - Abdominal pain [None]
  - Nausea [None]
  - Flushing [None]

NARRATIVE: CASE EVENT DATE: 20230216
